FAERS Safety Report 23050232 (Version 1)
Quarter: 2023Q4

REPORT INFORMATION
  Report Type: Spontaneous
  Country: US (occurrence: US)
  Receive Date: 20231010
  Receipt Date: 20231010
  Transmission Date: 20240110
  Serious: Yes (Other)
  Sender: FDA-Public Use
  Company Number: US-Merck Healthcare KGaA-2023479536

PATIENT
  Age: 72 Year
  Sex: Female

DRUGS (2)
  1. MAVENCLAD [Suspect]
     Active Substance: CLADRIBINE
     Indication: Multiple sclerosis
     Dosage: YEAR ONE MONTH ONE THERAPY. TWO TABLETS ON DAY ONE AND ONE TABLET ON DAYS TWO TO FOUR.
     Route: 048
     Dates: start: 20230221, end: 20230224
  2. MAVENCLAD [Suspect]
     Active Substance: CLADRIBINE
     Dosage: YEAR ONE MONTH TWO THERAPY.
     Route: 048
     Dates: start: 20230321, end: 20230325

REACTIONS (6)
  - Cataract [Unknown]
  - Headache [Unknown]
  - Eye pain [Unknown]
  - Eye irritation [Unknown]
  - Eye pruritus [Unknown]
  - Abdominal pain upper [Unknown]

NARRATIVE: CASE EVENT DATE: 20230501
